FAERS Safety Report 9354335 (Version 2)
Quarter: 2013Q3

REPORT INFORMATION
  Report Type: Spontaneous
  Country: PT (occurrence: None)
  Receive Date: 20130613
  Receipt Date: 20130822
  Transmission Date: 20140515
  Serious: Yes (Other)
  Sender: FDA-Public Use
  Company Number: ACET20130020

PATIENT
  Age: 6 Year
  Sex: Male

DRUGS (1)
  1. Q-PAP [Suspect]
     Indication: HEADACHE
     Route: 048

REACTIONS (3)
  - Anaphylactic reaction [None]
  - Disease recurrence [None]
  - Loss of consciousness [None]
